FAERS Safety Report 8511466-X (Version None)
Quarter: 2012Q3

REPORT INFORMATION
  Report Type: 
  Country: None (occurrence: None)
  Receive Date: 20120716
  Receipt Date: 20120711
  Transmission Date: 20120928
  Serious: Yes (Hospitalization)
  Sender: FDA-Public Use
  Company Number: US-SANOFI-AVENTIS-2012SA049971

PATIENT
  Sex: Female

DRUGS (3)
  1. SOLOSTAR [Suspect]
  2. LANTUS [Suspect]
     Dosage: DOSE:14 UNIT(S)
     Route: 058
  3. HUMALOG [Concomitant]
     Dosage: MEALTIME INSULIN

REACTIONS (2)
  - DRUG DOSE OMISSION [None]
  - CEREBROVASCULAR ACCIDENT [None]
